FAERS Safety Report 7674297-9 (Version None)
Quarter: 2011Q3

REPORT INFORMATION
  Report Type: 
  Country: None (occurrence: None)
  Receive Date: 20110810
  Receipt Date: 20101101
  Transmission Date: 20111222
  Serious: No
  Sender: FDA-Public Use
  Company Number: US-BAUSCH-2010BL006148

PATIENT
  Age: 34 Year
  Sex: Female
  Weight: 63 kg

DRUGS (2)
  1. CROMOLYN SODIUM [Suspect]
     Indication: OFF LABEL USE
     Route: 045
     Dates: start: 20101030, end: 20101031
  2. CROMOLYN SODIUM [Suspect]
     Indication: SINUS CONGESTION
     Route: 045
     Dates: start: 20101030, end: 20101031

REACTIONS (7)
  - SWELLING FACE [None]
  - PARAESTHESIA [None]
  - PRURITUS [None]
  - OEDEMA PERIPHERAL [None]
  - SWOLLEN TONGUE [None]
  - FEELING JITTERY [None]
  - HAEMATOCHEZIA [None]
